FAERS Safety Report 15390750 (Version 1)
Quarter: 2018Q3

REPORT INFORMATION
  Report Type: Spontaneous
  Country: US (occurrence: US)
  Receive Date: 20180917
  Receipt Date: 20180917
  Transmission Date: 20181010
  Serious: No
  Sender: FDA-Public Use
  Company Number: US-SA-2018SA258548

PATIENT
  Sex: Female

DRUGS (4)
  1. MUPIROCIN. [Concomitant]
     Active Substance: MUPIROCIN
  2. LEXAPRO [Concomitant]
     Active Substance: ESCITALOPRAM OXALATE
  3. DUPIXENT [Suspect]
     Active Substance: DUPILUMAB
     Indication: DERMATITIS ATOPIC
     Dosage: 300 MG, QOW
  4. NEORAL [Concomitant]
     Active Substance: CYCLOSPORINE

REACTIONS (2)
  - Therapeutic response decreased [Unknown]
  - Drug dose omission [Unknown]
